FAERS Safety Report 9884044 (Version 3)
Quarter: 2015Q1

REPORT INFORMATION
  Report Type: Spontaneous
  Country: US (occurrence: US)
  Receive Date: 20140210
  Receipt Date: 20150222
  Transmission Date: 20150721
  Serious: No
  Sender: FDA-Public Use
  Company Number: US-ALLERGAN-1316777US

PATIENT
  Age: 58 Year
  Sex: Female

DRUGS (5)
  1. BOTOX [Suspect]
     Active Substance: ONABOTULINUMTOXINA
     Indication: TORTICOLLIS
     Dosage: 295 UNITS, SINGLE
     Route: 030
     Dates: start: 20131119, end: 20131119
  2. BOTOX [Suspect]
     Active Substance: ONABOTULINUMTOXINA
     Dosage: UNK, SINGLE
  3. FLEXERIL [Concomitant]
     Active Substance: CYCLOBENZAPRINE HYDROCHLORIDE
     Indication: PRODUCT USED FOR UNKNOWN INDICATION
     Dosage: 5 MG, QOD
     Route: 048
  4. CLONAZEPAM. [Concomitant]
     Active Substance: CLONAZEPAM
     Indication: PRODUCT USED FOR UNKNOWN INDICATION
     Dosage: 0.5 MG, QOD
     Route: 048
  5. BOTOX [Suspect]
     Active Substance: ONABOTULINUMTOXINA
     Indication: MUSCLE SPASMS
     Dosage: UNK, SINGLE
     Route: 030

REACTIONS (19)
  - Malaise [Recovering/Resolving]
  - Fatigue [Recovering/Resolving]
  - Eye infection [Recovering/Resolving]
  - Hypopnoea [Recovering/Resolving]
  - Cough [Recovering/Resolving]
  - Eye pain [Recovering/Resolving]
  - Aphonia [Recovered/Resolved]
  - Dyspnoea [Recovering/Resolving]
  - Eye discharge [Recovering/Resolving]
  - Muscular weakness [Recovering/Resolving]
  - Eye irritation [Recovering/Resolving]
  - Eyelid ptosis [Recovering/Resolving]
  - Dry eye [Recovering/Resolving]
  - Influenza like illness [Recovering/Resolving]
  - Dysphagia [Recovering/Resolving]
  - Headache [Recovering/Resolving]
  - Therapeutic response decreased [Unknown]
  - Respiratory tract congestion [Recovering/Resolving]
  - Conjunctivitis [Recovering/Resolving]

NARRATIVE: CASE EVENT DATE: 20131120
